FAERS Safety Report 10678522 (Version 1)
Quarter: 2014Q4

REPORT INFORMATION
  Report Type: Spontaneous
  Country: US (occurrence: None)
  Receive Date: 20141224
  Receipt Date: 20141224
  Transmission Date: 20150529
  Serious: No
  Sender: FDA-Public Use
  Company Number: None

PATIENT
  Age: 22 Year
  Sex: Female
  Weight: 53.52 kg

DRUGS (1)
  1. XULANE [Suspect]
     Active Substance: ETHINYL ESTRADIOL\NORELGESTROMIN
     Indication: CONTRACEPTION
     Dosage: 1 PATCH; APPLIED AS MEDICATED PATCH TO SKIN
     Dates: start: 20140925, end: 20141222

REACTIONS (4)
  - Pollakiuria [None]
  - Increased appetite [None]
  - Irritability [None]
  - Dyspepsia [None]

NARRATIVE: CASE EVENT DATE: 20141222
